FAERS Safety Report 11717264 (Version 2)
Quarter: 2015Q4

REPORT INFORMATION
  Report Type: Spontaneous
  Country: US (occurrence: US)
  Receive Date: 20151109
  Receipt Date: 20151112
  Transmission Date: 20160304
  Serious: No
  Sender: FDA-Public Use
  Company Number: US-009507513-1511USA004387

PATIENT
  Sex: Female

DRUGS (2)
  1. NEXPLANON [Suspect]
     Active Substance: ETONOGESTREL
     Dosage: 68 MG IMPLANT/3 YEARS
     Route: 059
  2. NEXPLANON [Suspect]
     Active Substance: ETONOGESTREL
     Dosage: 68 MG IMPLANT/3 YEARS
     Route: 059

REACTIONS (4)
  - Needle issue [Unknown]
  - Device difficult to use [Recovered/Resolved]
  - No adverse event [Unknown]
  - Skin injury [Unknown]
